FAERS Safety Report 25319911 (Version 2)
Quarter: 2025Q2

REPORT INFORMATION
  Report Type: Spontaneous
  Country: CN (occurrence: CN)
  Receive Date: 20250515
  Receipt Date: 20250521
  Transmission Date: 20250717
  Serious: Yes (Hospitalization, Other)
  Sender: PFIZER
  Company Number: CN-PFIZER INC-PV202500057183

PATIENT
  Age: 66 Year
  Sex: Female

DRUGS (5)
  1. CRIZOTINIB [Suspect]
     Active Substance: CRIZOTINIB
     Indication: Lung adenocarcinoma
     Dosage: 250 MG, 2X/DAY
     Dates: start: 2020, end: 2020
  2. CRIZOTINIB [Suspect]
     Active Substance: CRIZOTINIB
     Dosage: 250 MG, 2X/DAY
     Dates: start: 2020
  3. ALECTINIB [Suspect]
     Active Substance: ALECTINIB
     Indication: Lung adenocarcinoma
     Dosage: 600 MG, 2X/DAY
     Route: 048
  4. ALECTINIB [Suspect]
     Active Substance: ALECTINIB
     Dosage: 300 MG, 2X/DAY (REDUCED)
     Route: 048
     Dates: start: 2021
  5. TENOFOVIR [Concomitant]
     Active Substance: TENOFOVIR
     Dosage: 300 MG, 1X/DAY (FOR THE PAST TWO YEARS)

REACTIONS (2)
  - Renal failure [Recovering/Resolving]
  - Renal tubular injury [Recovering/Resolving]

NARRATIVE: CASE EVENT DATE: 20200101
